FAERS Safety Report 24289610 (Version 4)
Quarter: 2024Q4

REPORT INFORMATION
  Report Type: Report from Study
  Country: US (occurrence: US)
  Receive Date: 20240906
  Receipt Date: 20241111
  Transmission Date: 20250114
  Serious: Yes (Hospitalization, Other)
  Sender: NOVARTIS
  Company Number: US-002147023-NVSC2024US055870

PATIENT
  Sex: Female

DRUGS (4)
  1. KESIMPTA [Suspect]
     Active Substance: OFATUMUMAB
     Indication: Product used for unknown indication
     Dosage: UNK, Q3W
     Route: 065
  2. KESIMPTA [Suspect]
     Active Substance: OFATUMUMAB
     Dosage: UNK, Q4W
     Route: 065
     Dates: start: 20240801, end: 20240829
  3. ASPIRIN [Concomitant]
     Active Substance: ASPIRIN
     Indication: Product used for unknown indication
     Dosage: UNK
     Route: 065
  4. MOTRIN [Concomitant]
     Active Substance: IBUPROFEN
     Indication: Product used for unknown indication
     Dosage: UNK
     Route: 065

REACTIONS (22)
  - Pancreatitis [Recovered/Resolved]
  - Condition aggravated [Unknown]
  - Optic neuritis [Unknown]
  - Feeling abnormal [Unknown]
  - Muscle spasms [Unknown]
  - Pain [Unknown]
  - Migraine [Unknown]
  - Influenza like illness [Unknown]
  - Pyrexia [Unknown]
  - Chills [Unknown]
  - Nausea [Recovered/Resolved]
  - Injection related reaction [Unknown]
  - Back pain [Unknown]
  - Pain in extremity [Unknown]
  - Headache [Unknown]
  - Gait disturbance [Recovering/Resolving]
  - Fatigue [Unknown]
  - Restlessness [Unknown]
  - Eye pain [Recovered/Resolved]
  - Vision blurred [Unknown]
  - Drug ineffective [Unknown]
  - Speech disorder [Unknown]
